FAERS Safety Report 19771791 (Version 2)
Quarter: 2021Q3

REPORT INFORMATION
  Report Type: Spontaneous
  Country: FR (occurrence: FR)
  Receive Date: 20210901
  Receipt Date: 20210911
  Transmission Date: 20211014
  Serious: Yes (Hospitalization)
  Sender: FDA-Public Use
  Company Number: FR-ROCHE-2901636

PATIENT
  Age: 37 Year
  Sex: Female

DRUGS (4)
  1. OCRELIZUMAB. [Suspect]
     Active Substance: OCRELIZUMAB
     Indication: RELAPSING-REMITTING MULTIPLE SCLEROSIS
     Route: 065
     Dates: start: 20190121
  2. COVID?19 VACCINE [Concomitant]
     Indication: COVID-19
     Route: 065
     Dates: start: 20210407
  3. COVID?19 VACCINE [Concomitant]
     Route: 065
     Dates: start: 20210428
  4. COVID?19 VACCINE [Concomitant]
     Route: 065
     Dates: start: 202106

REACTIONS (1)
  - COVID-19 [Unknown]

NARRATIVE: CASE EVENT DATE: 20210804
